FAERS Safety Report 5957104-1 (Version None)
Quarter: 2008Q4

REPORT INFORMATION
  Report Type: 
  Country: None (occurrence: None)
  Receive Date: 20081106
  Receipt Date: 20080618
  Transmission Date: 20090506
  Serious: Yes (Hospitalization)
  Sender: FDA-Public Use
  Company Number: US200806004253

PATIENT
  Age: 65 Year
  Sex: Female

DRUGS (4)
  1. PROZAC [Suspect]
     Dates: start: 20020101
  2. CYMBALTA [Suspect]
     Dosage: 60 MG
  3. LIPITOR [Concomitant]
  4. ASPIRIN [Concomitant]

REACTIONS (10)
  - ANGER [None]
  - ANXIETY [None]
  - BLOOD PRESSURE INCREASED [None]
  - BRADYPHRENIA [None]
  - CONSTIPATION [None]
  - CRYING [None]
  - DEPRESSION [None]
  - IRRITABILITY [None]
  - MYOCARDIAL INFARCTION [None]
  - RHEUMATOID ARTHRITIS [None]
